FAERS Safety Report 6386552-3 (Version None)
Quarter: 2009Q4

REPORT INFORMATION
  Report Type: 
  Country: None (occurrence: None)
  Receive Date: 20091002
  Receipt Date: 20090325
  Transmission Date: 20100525
  Serious: No
  Sender: FDA-Public Use
  Company Number: US-ASTRAZENECA-2009UW07602

PATIENT
  Sex: Female
  Weight: 81.6 kg

DRUGS (7)
  1. ARIMIDEX [Suspect]
     Route: 048
     Dates: start: 20080101
  2. ZOMETA [Concomitant]
     Dosage: EVERY SIX MONTHS
  3. HERCEPTIN [Concomitant]
  4. SINGULAIR [Concomitant]
  5. NASONEX [Concomitant]
  6. CALTRATE [Concomitant]
  7. IBUPROFEN [Concomitant]

REACTIONS (5)
  - ARTHRALGIA [None]
  - INFLUENZA LIKE ILLNESS [None]
  - OEDEMA PERIPHERAL [None]
  - RED BLOOD CELL COUNT DECREASED [None]
  - WHITE BLOOD CELL COUNT DECREASED [None]
